FAERS Safety Report 9170791 (Version 2)
Quarter: 2013Q2

REPORT INFORMATION
  Report Type: Spontaneous
  Country: CA (occurrence: US)
  Receive Date: 20130319
  Receipt Date: 20130501
  Transmission Date: 20140414
  Serious: No
  Sender: FDA-Public Use
  Company Number: CA-PFIZER INC-2013083520

PATIENT
  Sex: Female

DRUGS (1)
  1. DETROL [Suspect]
     Dosage: 2 MG, UNK

REACTIONS (4)
  - Incorrect storage of drug [Not Recovered/Not Resolved]
  - Urge incontinence [Not Recovered/Not Resolved]
  - Feeling abnormal [Not Recovered/Not Resolved]
  - Drug ineffective [Not Recovered/Not Resolved]
